FAERS Safety Report 5558395-1 (Version None)
Quarter: 2007Q4

REPORT INFORMATION
  Report Type: 
  Country: None (occurrence: None)
  Receive Date: 20071214
  Receipt Date: 20071202
  Transmission Date: 20080405
  Serious: Yes (Other)
  Sender: FDA-Public Use
  Company Number: US-PFIZER INC-2007102369

PATIENT
  Sex: Female
  Weight: 50.909 kg

DRUGS (8)
  1. CHANTIX [Suspect]
     Indication: EX-SMOKER
     Dates: start: 20071125, end: 20071129
  2. XANAX RETARD [Concomitant]
  3. LEXAPRO [Concomitant]
  4. OXYCONTIN [Concomitant]
  5. SOMA [Concomitant]
  6. ALBUTEROL [Concomitant]
  7. ADVAIR DISKUS 100/50 [Concomitant]
  8. BENTYL [Concomitant]

REACTIONS (12)
  - ABNORMAL DREAMS [None]
  - ACTIVITIES OF DAILY LIVING IMPAIRED [None]
  - ANXIETY [None]
  - APHASIA [None]
  - BACK PAIN [None]
  - CRYING [None]
  - DISTURBANCE IN ATTENTION [None]
  - EMOTIONAL DISTRESS [None]
  - SUICIDAL IDEATION [None]
  - VIOLENCE-RELATED SYMPTOM [None]
  - VISION BLURRED [None]
  - VISUAL ACUITY REDUCED [None]
